FAERS Safety Report 8208958-X (Version None)
Quarter: 2012Q1

REPORT INFORMATION
  Report Type: 
  Country: None (occurrence: None)
  Receive Date: 20120314
  Receipt Date: 20120309
  Transmission Date: 20120608
  Serious: Yes (Hospitalization)
  Sender: FDA-Public Use
  Company Number: BE-AMGEN-BELNI2012015693

PATIENT
  Age: 79 Year
  Sex: Male

DRUGS (1)
  1. ROMIPLOSTIM [Suspect]
     Indication: THROMBOCYTOPENIA
     Dosage: 3 MUG/KG, QWK
     Route: 058
     Dates: start: 20110526

REACTIONS (1)
  - MYOCARDIAL INFARCTION [None]
